FAERS Safety Report 22090937 (Version 1)
Quarter: 2023Q1

REPORT INFORMATION
  Report Type: Spontaneous
  Country: US (occurrence: US)
  Receive Date: 20230314
  Receipt Date: 20230314
  Transmission Date: 20230418
  Serious: Yes (Hospitalization)
  Sender: FDA-Public Use
  Company Number: US-STRIDES ARCOLAB LIMITED-2023SP003726

PATIENT
  Sex: Female
  Weight: 3.3 kg

DRUGS (14)
  1. PROPRANOLOL [Suspect]
     Active Substance: PROPRANOLOL HYDROCHLORIDE
     Indication: Atrial tachycardia
     Dosage: UNK, EVERY 6 HRS, RECEIVED AT 1 MG/KG/DAY DIVIDED EVERY 6 HOURS ON POST-OPERATIVE DAY 11
  2. DIGOXIN [Suspect]
     Active Substance: DIGOXIN
     Indication: Atrial tachycardia
     Dosage: 16 MICROGRAM/KILOGRAM, RECEIVED PRIOR TO THE NORWOOD PROCEDURE
     Route: 051
  3. DIGOXIN [Suspect]
     Active Substance: DIGOXIN
     Dosage: 3 MICROGRAM/KILOGRAM, BID
     Route: 051
  4. SOTALOL [Suspect]
     Active Substance: SOTALOL
     Indication: Atrial tachycardia
     Dosage: 12 MILLIGRAM/SQ. METER, EVERY 8 HOURS, RECEIVED EVERY 8 HOURS ON POST-OPERATIVE DAY 7
     Route: 065
  5. AMIODARONE [Suspect]
     Active Substance: AMIODARONE
     Indication: Atrial tachycardia
     Dosage: 7 MICROGRAM/KILOGRAM PER MINUTE, INTRAVENOUS INFUSION, STARTED RECEIVING ON POST-OPERATIVE DAY 10
     Route: 042
  6. AMIODARONE [Suspect]
     Active Substance: AMIODARONE
     Dosage: 3.5 MICROGRAM/KILOGRAM, PER MINUTE, INTRAVENOUS INFUSIONSTARTED RECEIVING REDUCED DOSE ON POST-OPERA
     Route: 042
  7. AMIODARONE [Suspect]
     Active Substance: AMIODARONE
     Dosage: 1 MILLIGRAM/KILOGRAM, INTRAVENOUS INFUSION, RECEIVED 10 BOLUSES ON POST-OPERATIVE DAY 18
     Route: 042
  8. AMIODARONE [Suspect]
     Active Substance: AMIODARONE
     Dosage: 7 MICROGRAM/KILOGRAM, PER MINUTE, INTRAVENOUS INFUSION, STARTED RECEIVING INCREASED DOSE
     Route: 042
  9. ESMOLOL [Suspect]
     Active Substance: ESMOLOL HYDROCHLORIDE
     Indication: Atrial tachycardia
     Dosage: UNK, INTRAVENOUS INFUSION
     Route: 042
  10. ESMOLOL [Suspect]
     Active Substance: ESMOLOL HYDROCHLORIDE
     Dosage: UNK, INTRAVENOUS INFUSION, RECEIVED AS TRIALS
     Route: 042
  11. ESMOLOL [Suspect]
     Active Substance: ESMOLOL HYDROCHLORIDE
     Dosage: 250 MICROGRAM/KILOGRAM PER MINUTE, INTRAVENOUS INFUSION, RECEIVED ON POST-OPERATIVE DAY 37
     Route: 042
  12. ESMOLOL [Suspect]
     Active Substance: ESMOLOL HYDROCHLORIDE
     Dosage: UNK, RESTARTED
     Route: 065
  13. IVABRADINE [Suspect]
     Active Substance: IVABRADINE
     Indication: Atrial tachycardia
     Dosage: UNK, BID, RECEIVED AT 0.1 MG/KG/DOSE FOR 24 HOURS
  14. IVABRADINE [Suspect]
     Active Substance: IVABRADINE
     Dosage: UNK, TID, RECEIVED AT 0.1 MG/KG/DOSE THREE TIMES A DAY

REACTIONS (2)
  - Heart rate decreased [Unknown]
  - Drug ineffective for unapproved indication [Unknown]
